FAERS Safety Report 11431229 (Version 1)
Quarter: 2015Q3

REPORT INFORMATION
  Report Type: Spontaneous
  Country: US (occurrence: US)
  Receive Date: 20150828
  Receipt Date: 20150828
  Transmission Date: 20151125
  Serious: No
  Sender: FDA-Public Use
  Company Number: US-ROCHE-1155652

PATIENT
  Sex: Female

DRUGS (2)
  1. PEGASYS [Suspect]
     Active Substance: PEGINTERFERON ALFA-2A
     Indication: CHRONIC HEPATITIS C
     Route: 058
     Dates: start: 20110322, end: 20120319
  2. RIBAVIRIN. [Suspect]
     Active Substance: RIBAVIRIN
     Indication: CHRONIC HEPATITIS C
     Dosage: IN DIVIDED DOSE
     Route: 048
     Dates: start: 20110322, end: 20120319

REACTIONS (5)
  - Abdominal discomfort [Unknown]
  - Weight increased [Unknown]
  - Decreased appetite [Unknown]
  - Pruritus [Unknown]
  - Weight decreased [Unknown]
